FAERS Safety Report 20644018 (Version 4)
Quarter: 2022Q2

REPORT INFORMATION
  Report Type: Report from Study
  Country: BR (occurrence: BR)
  Receive Date: 20220328
  Receipt Date: 20220419
  Transmission Date: 20220721
  Serious: No
  Sender: FDA-Public Use
  Company Number: BR-JNJFOC-20220351748

PATIENT
  Age: 4 Decade
  Sex: Male

DRUGS (6)
  1. SIMPONI [Suspect]
     Active Substance: GOLIMUMAB
     Indication: Psoriatic arthropathy
     Dosage: 50.00 MG / 0.50 ML
     Route: 058
     Dates: start: 20180301
  2. SIMPONI [Suspect]
     Active Substance: GOLIMUMAB
  3. DULOXETINE [Concomitant]
     Active Substance: DULOXETINE
  4. ALPRAZOLAM [Concomitant]
     Active Substance: ALPRAZOLAM
  5. ALPRAZOLAM [Concomitant]
     Active Substance: ALPRAZOLAM
  6. GLIFAGE [Concomitant]
     Active Substance: METFORMIN HYDROCHLORIDE

REACTIONS (2)
  - Application site pain [Unknown]
  - Needle issue [Unknown]
